FAERS Safety Report 15758182 (Version 2)
Quarter: 2018Q4

REPORT INFORMATION
  Report Type: Spontaneous
  Country: US (occurrence: US)
  Receive Date: 20181225
  Receipt Date: 20181231
  Transmission Date: 20190205
  Serious: Yes (Other)
  Sender: FDA-Public Use
  Company Number: US-BAUSCH-BL-2018-035860

PATIENT
  Age: 75 Year
  Sex: Female

DRUGS (6)
  1. OXALIPLATIN. [Suspect]
     Active Substance: OXALIPLATIN
     Indication: TUMOUR INVASION
  2. FOLINIC ACID [Suspect]
     Active Substance: LEUCOVORIN
     Indication: COLON CANCER STAGE II
     Dosage: 1 DOSE
     Route: 065
     Dates: start: 2018, end: 2018
  3. FOLINIC ACID [Suspect]
     Active Substance: LEUCOVORIN
     Indication: TUMOUR INVASION
  4. OXALIPLATIN. [Suspect]
     Active Substance: OXALIPLATIN
     Indication: COLON CANCER STAGE II
     Dosage: 1 DOSE
     Route: 065
     Dates: start: 2018, end: 2018
  5. FLUOROURACIL. [Suspect]
     Active Substance: FLUOROURACIL
     Indication: COLON CANCER STAGE II
     Dosage: 1 DOSE
     Route: 065
     Dates: start: 2018, end: 2018
  6. FLUOROURACIL. [Suspect]
     Active Substance: FLUOROURACIL
     Indication: TUMOUR INVASION

REACTIONS (1)
  - Diarrhoea [Recovered/Resolved]

NARRATIVE: CASE EVENT DATE: 2018
